FAERS Safety Report 5867174-7 (Version None)
Quarter: 2008Q3

REPORT INFORMATION
  Report Type: 
  Country: None (occurrence: None)
  Receive Date: 20080829
  Receipt Date: 20080829
  Transmission Date: 20090109
  Serious: Yes (Other)
  Sender: FDA-Public Use
  Company Number: None

PATIENT
  Age: 75 Year
  Sex: Male
  Weight: 94.8018 kg

DRUGS (12)
  1. EZETIMIDE 10MG RECEIVES FROM ANOTHER PROVIDER [Suspect]
     Indication: CORONARY ARTERY DISEASE
     Dosage: 10MG  QD PO
     Route: 048
     Dates: start: 20041230, end: 20080829
  2. TERAZOSIN HCL [Concomitant]
  3. SIMVASTATIN [Concomitant]
  4. HYDROCHLOROTHIAZIDE [Concomitant]
  5. LOSARTAN POTASSIUM [Concomitant]
  6. METOPROLOL TARTRATE [Concomitant]
  7. POTASSIUM CHLORIDE [Concomitant]
  8. OMEPRAZOLE [Concomitant]
  9. AMLODIPINE [Concomitant]
  10. ASPIRIN [Concomitant]
  11. ZETIA [Concomitant]
  12. COUMADIN [Concomitant]

REACTIONS (2)
  - LENTIGO MALIGNA STAGE UNSPECIFIED [None]
  - MALIGNANT MELANOMA IN SITU [None]
